FAERS Safety Report 16575117 (Version 1)
Quarter: 2019Q3

REPORT INFORMATION
  Report Type: Spontaneous
  Country: SE (occurrence: SE)
  Receive Date: 20190715
  Receipt Date: 20190715
  Transmission Date: 20191004
  Serious: Yes (Other)
  Sender: FDA-Public Use
  Company Number: PHHY2019SE158965

PATIENT
  Age: 8 Day
  Sex: Male

DRUGS (8)
  1. TRILEPTAL [Suspect]
     Active Substance: OXCARBAZEPINE
     Indication: FOETAL EXPOSURE DURING PREGNANCY
     Dosage: UNK
     Route: 064
  2. LAMICTAL [Suspect]
     Active Substance: LAMOTRIGINE
     Dosage: MATERNAL DOSE: 80 MG/DAG
     Route: 063
  3. RITALINE [Suspect]
     Active Substance: METHYLPHENIDATE HYDROCHLORIDE
     Dosage: MATERNAL DOSE: 30 MG (1-2X 30 MG/DAG)
     Route: 063
  4. LAMICTAL [Suspect]
     Active Substance: LAMOTRIGINE
     Indication: FOETAL EXPOSURE DURING PREGNANCY
     Dosage: UNK
     Route: 064
  5. TRILEPTAL [Suspect]
     Active Substance: OXCARBAZEPINE
     Dosage: MATERNAL DOSE: 1200 MG/DAG
     Route: 063
  6. PINDOLOL. [Concomitant]
     Active Substance: PINDOLOL
     Indication: FOETAL EXPOSURE DURING PREGNANCY
     Dosage: UNK
     Route: 064
  7. PINDOLOL. [Concomitant]
     Active Substance: PINDOLOL
     Dosage: UNK
     Route: 063
  8. RITALINE [Suspect]
     Active Substance: METHYLPHENIDATE HYDROCHLORIDE
     Indication: FOETAL EXPOSURE DURING PREGNANCY
     Dosage: UNK
     Route: 064

REACTIONS (4)
  - Foetal exposure during pregnancy [Recovered/Resolved]
  - Alanine aminotransferase increased [Recovered/Resolved]
  - Exposure via breast milk [Recovered/Resolved]
  - Gamma-glutamyltransferase increased [Recovered/Resolved]

NARRATIVE: CASE EVENT DATE: 201905
